FAERS Safety Report 9017207 (Version 2)
Quarter: 2013Q4

REPORT INFORMATION
  Report Type: Report from Study
  Country: CA (occurrence: CA)
  Receive Date: 20130117
  Receipt Date: 20131120
  Transmission Date: 20140711
  Serious: Yes (Death, Other)
  Sender: FDA-Public Use
  Company Number: CA-CELGENEUS-028-21880-13011277

PATIENT
  Sex: 0

DRUGS (1)
  1. REVLIMID [Suspect]
     Indication: NON-HODGKIN^S LYMPHOMA
     Dosage: 25 MILLIGRAM
     Route: 048

REACTIONS (33)
  - Lung abscess [Fatal]
  - Disease progression [Fatal]
  - Cognitive disorder [Unknown]
  - Lung disorder [Unknown]
  - Gout [Unknown]
  - Insomnia [Unknown]
  - Lymphopenia [Unknown]
  - Thrombocytopenia [Unknown]
  - Neutropenia [Unknown]
  - Dyspnoea [Unknown]
  - Febrile neutropenia [Unknown]
  - Pain [Unknown]
  - Pneumonitis [Unknown]
  - Fatigue [Unknown]
  - Muscular weakness [Unknown]
  - Hypersensitivity [Unknown]
  - Decreased appetite [Unknown]
  - Dehydration [Unknown]
  - Pruritus [Unknown]
  - Anaemia [Unknown]
  - Diarrhoea [Unknown]
  - Dizziness [Unknown]
  - Rash [Unknown]
  - Renal failure [Unknown]
  - Constipation [Unknown]
  - Back pain [Unknown]
  - Oedema peripheral [Unknown]
  - Nausea [Unknown]
  - Infection [Unknown]
  - Cough [Unknown]
  - Dry skin [Unknown]
  - Abdominal pain [Unknown]
  - Pyrexia [Unknown]
